FAERS Safety Report 4262078-8 (Version None)
Quarter: 2004Q1

REPORT INFORMATION
  Report Type: 
  Country: None (occurrence: None)
  Receive Date: 20040102
  Receipt Date: 20031220
  Transmission Date: 20041129
  Serious: Yes (Other)
  Sender: FDA-Public Use
  Company Number: GB-GLAXOSMITHKLINE-B0318313A

PATIENT
  Sex: Male

DRUGS (3)
  1. LAMIVUDINE [Suspect]
     Route: 065
     Dates: start: 20031121
  2. VIREAD [Suspect]
     Route: 065
     Dates: start: 20031121
  3. KALETRA [Suspect]
     Route: 048
     Dates: start: 20031121

REACTIONS (1)
  - ERYTHEMA MULTIFORME [None]
